FAERS Safety Report 5345989-1 (Version None)
Quarter: 2007Q2

REPORT INFORMATION
  Report Type: 
  Country: None (occurrence: None)
  Receive Date: 20070430
  Receipt Date: 20070314
  Transmission Date: 20071010
  Serious: No
  Sender: FDA-Public Use
  Company Number: 261696

PATIENT
  Age: 6 Year
  Sex: Female
  Weight: 29 kg

DRUGS (1)
  1. LEVEMIR [Suspect]
     Indication: DIABETES MELLITUS INSULIN-DEPENDENT
     Dosage: 7 U, QD, SUBCUTANEOUS
     Route: 058
     Dates: start: 20070112

REACTIONS (1)
  - BLOOD GLUCOSE INCREASED [None]
